FAERS Safety Report 10374870 (Version 1)
Quarter: 2014Q1

REPORT INFORMATION
  Report Type: Spontaneous
  Country: US (occurrence: None)
  Receive Date: 20140306
  Receipt Date: 20140306
  Transmission Date: 20141002
  Serious: Yes (Hospitalization)
  Sender: FDA-Public Use
  Company Number: 163-21880-13061370

PATIENT
  Age: 64 Year
  Sex: Male

DRUGS (7)
  1. REVLIMID (LENALIDOMIDE) (25 MILLIGRAM, CAPSULES) [Suspect]
     Indication: PLASMA CELL MYELOMA
     Route: 048
     Dates: start: 201004
  2. VALTREX (VALACICLOVIR HYDROCHLORIDE) [Concomitant]
  3. METOPROLOL (METOPROLOL) [Concomitant]
  4. AMLODIPINE (AMLODIPINE) [Concomitant]
  5. PROZAC (FLUOXETINE HYDROCHLORIDE) [Concomitant]
  6. LIPITOR (ATORVASTATIN) [Concomitant]
  7. ALLOPURINOL (ALLOPURINOL) [Concomitant]

REACTIONS (1)
  - Pneumonia [None]
